FAERS Safety Report 11186568 (Version 1)
Quarter: 2015Q2

REPORT INFORMATION
  Report Type: Spontaneous
  Country: ES (occurrence: ES)
  Receive Date: 20150613
  Receipt Date: 20150613
  Transmission Date: 20150821
  Serious: Yes (Other)
  Sender: FDA-Public Use
  Company Number: PHHY2015ES067226

PATIENT
  Age: 77 Year
  Sex: Female

DRUGS (7)
  1. ZOLEDRONIC ACID [Concomitant]
     Active Substance: ZOLEDRONIC ACID
     Indication: INVASIVE DUCTAL BREAST CARCINOMA
     Route: 065
  2. LETROZOLE. [Suspect]
     Active Substance: LETROZOLE
     Indication: METASTASES TO PLEURA
  3. ZOLEDRONIC ACID [Concomitant]
     Active Substance: ZOLEDRONIC ACID
     Indication: METASTASES TO PLEURA
  4. LETROZOLE. [Suspect]
     Active Substance: LETROZOLE
     Indication: INVASIVE DUCTAL BREAST CARCINOMA
     Route: 065
  5. TRANDOLAPRIL AND VERAPAMIL HYDROCHLORIDE [Concomitant]
     Active Substance: TRANDOLAPRIL\VERAPAMIL HYDROCHLORIDE
     Indication: HYPERTENSION
     Dosage: UNK
     Route: 065
  6. ZOLEDRONIC ACID [Concomitant]
     Active Substance: ZOLEDRONIC ACID
     Indication: METASTASES TO BONE
  7. LETROZOLE. [Suspect]
     Active Substance: LETROZOLE
     Indication: METASTASES TO BONE

REACTIONS (10)
  - Skin lesion [Recovered/Resolved]
  - Skin exfoliation [Recovered/Resolved]
  - Lymphocytic infiltration [Recovered/Resolved]
  - Extravasation [Recovered/Resolved]
  - Parapsoriasis [Recovered/Resolved]
  - Parakeratosis [Recovered/Resolved]
  - Hyperkeratosis [Recovered/Resolved]
  - Rash maculo-papular [Recovered/Resolved]
  - Acanthosis [Recovered/Resolved]
  - Excessive granulation tissue [Recovered/Resolved]
